FAERS Safety Report 7477030-9 (Version None)
Quarter: 2011Q2

REPORT INFORMATION
  Report Type: 
  Country: None (occurrence: None)
  Receive Date: 20110512
  Receipt Date: 20110426
  Transmission Date: 20111010
  Serious: Yes (Hospitalization)
  Sender: FDA-Public Use
  Company Number: JP-AMGEN-JPNCT2011018164

PATIENT
  Age: 75 Year
  Sex: Female
  Weight: 53 kg

DRUGS (3)
  1. CALCICHEW D3 [Concomitant]
     Indication: OSTEOPOROSIS
     Dosage: UNK
     Route: 048
     Dates: start: 20090501
  2. KARY UNI [Concomitant]
     Indication: CATARACT
     Dosage: ADEQUATE DOSE
     Route: 047
     Dates: start: 20100512
  3. DENOSUMAB [Suspect]
     Indication: OSTEOPOROSIS
     Dosage: DENOSUMAB 60MG OR PLACEBO
     Route: 058
     Dates: start: 20090526

REACTIONS (1)
  - NEAR DROWNING [None]
